FAERS Safety Report 16353953 (Version 3)
Quarter: 2019Q3

REPORT INFORMATION
  Report Type: Spontaneous
  Country: KR (occurrence: KR)
  Receive Date: 20190524
  Receipt Date: 20190703
  Transmission Date: 20191004
  Serious: Yes (Other)
  Sender: FDA-Public Use
  Company Number: KR-UCBSA-2019021081

PATIENT
  Age: 40 Year
  Sex: Female

DRUGS (8)
  1. KEPPRA [Suspect]
     Active Substance: LEVETIRACETAM
     Dosage: 1 TABLET OF 250 MG
     Route: 048
     Dates: start: 2019, end: 2019
  2. KEPPRA [Suspect]
     Active Substance: LEVETIRACETAM
     Dosage: 1.5 TABELT OF 250 MG
     Route: 048
     Dates: start: 2019
  3. KEPPRA [Suspect]
     Active Substance: LEVETIRACETAM
     Dosage: 500 MG 1.5 TABLET TWICE DAILY
     Route: 048
  4. KEPPRA [Suspect]
     Active Substance: LEVETIRACETAM
     Indication: SEIZURE
     Dosage: 1.5 TABLET OF 250 MILLIGRAM  TWICE A DAY
     Route: 048
     Dates: start: 2019, end: 2019
  5. URSA [Concomitant]
     Active Substance: URSODIOL
     Indication: PRODUCT USED FOR UNKNOWN INDICATION
     Dosage: UNK
  6. LEGALON [Concomitant]
     Active Substance: DIETARY SUPPLEMENT\HERBALS\MILK THISTLE
     Indication: PRODUCT USED FOR UNKNOWN INDICATION
     Dosage: UNK
  7. BARACLUDE [Concomitant]
     Active Substance: ENTECAVIR
     Indication: CHRONIC HEPATITIS B
     Dosage: UNK
     Route: 048
     Dates: start: 201904
  8. ORFIL [Concomitant]
     Active Substance: VALPROATE SODIUM
     Indication: SEIZURE
     Dosage: 150 MILLIGRAM, ONCE DAILY (QD)

REACTIONS (7)
  - Seizure [Recovering/Resolving]
  - Pupillary disorder [Not Recovered/Not Resolved]
  - Off label use [Unknown]
  - Chronic hepatitis B [Unknown]
  - Salivary hypersecretion [Not Recovered/Not Resolved]
  - Psychomotor hyperactivity [Recovered/Resolved]
  - Urine output increased [Not Recovered/Not Resolved]

NARRATIVE: CASE EVENT DATE: 2019
